FAERS Safety Report 19019024 (Version 1)
Quarter: 2021Q1

REPORT INFORMATION
  Report Type: Spontaneous
  Country: US (occurrence: US)
  Receive Date: 20210316
  Receipt Date: 20210316
  Transmission Date: 20210420
  Serious: No
  Sender: FDA-Public Use
  Company Number: US-GALDERMA-US2020048197

PATIENT
  Age: 18 Year
  Sex: Female

DRUGS (3)
  1. PROACTIV CLARIFYING NIGHT ACNE TREATMENT [Concomitant]
     Active Substance: SALICYLIC ACID
     Indication: ACNE
     Route: 061
     Dates: start: 202004, end: 202005
  2. PROACTIV MD DEEP CLEANSING FACE WASH [Concomitant]
     Active Substance: COSMETICS
     Indication: ACNE
     Route: 061
     Dates: start: 202004, end: 202005
  3. PROACTIV MD ADAPALENE ACNE TREATMENT [Suspect]
     Active Substance: ADAPALENE
     Indication: ACNE
     Dosage: 0.1%
     Route: 061
     Dates: start: 202004, end: 202005

REACTIONS (2)
  - Rash [Recovered/Resolved]
  - Skin irritation [Recovered/Resolved]

NARRATIVE: CASE EVENT DATE: 202004
